FAERS Safety Report 7550777-1 (Version None)
Quarter: 2011Q2

REPORT INFORMATION
  Report Type: 
  Country: None (occurrence: None)
  Receive Date: 20110609
  Receipt Date: 20110525
  Transmission Date: 20111010
  Serious: Yes (Other)
  Sender: FDA-Public Use
  Company Number: 2009S1007602

PATIENT
  Age: 59 Year
  Sex: Female
  Weight: 58.0604 kg

DRUGS (8)
  1. CYCLOBENZAPRINE HCL [Concomitant]
  2. ALDACTONE [Concomitant]
  3. OMEPRAZOLE [Concomitant]
  4. CLONIDINE [Concomitant]
  5. LISINOPRIL [Concomitant]
  6. SODIUM PHOSPHATE MONOBASIC MONOHYDRATE AND NAPO4 DIBASIC ANHYDROUS [Suspect]
     Indication: COLONOSCOPY
     Dosage: 90 ML; TOTAL;PO
     Route: 048
     Dates: start: 20070724, end: 20070724
  7. LIDODERM [Concomitant]
  8. AMITRIPTYLINE HCL [Concomitant]

REACTIONS (9)
  - ABDOMINAL PAIN [None]
  - VOMITING [None]
  - RENAL FAILURE ACUTE [None]
  - ARTERIOSCLEROSIS [None]
  - NEPHROSCLEROSIS [None]
  - HEADACHE [None]
  - VIRAL INFECTION [None]
  - DIARRHOEA [None]
  - KIDNEY FIBROSIS [None]
